FAERS Safety Report 17572880 (Version 1)
Quarter: 2020Q1

REPORT INFORMATION
  Report Type: Spontaneous
  Country: DE (occurrence: DE)
  Receive Date: 20200323
  Receipt Date: 20200323
  Transmission Date: 20200409
  Serious: Yes (Hospitalization)
  Sender: FDA-Public Use
  Company Number: DE-BAXTER-2020BAX005974

PATIENT
  Age: 55 Year
  Sex: Female

DRUGS (1)
  1. ENDOXAN LYOPHILISAT [Suspect]
     Active Substance: CYCLOPHOSPHAMIDE
     Indication: OVARIAN CANCER
     Dosage: SINGLE DOSE?DAY (0)?HIGH DOSE
     Route: 065
     Dates: start: 19820309

REACTIONS (1)
  - Thrombocytopenia [Recovered/Resolved]
